FAERS Safety Report 4436960-2 (Version None)
Quarter: 2004Q3

REPORT INFORMATION
  Report Type: 
  Country: None (occurrence: None)
  Receive Date: 20040830
  Receipt Date: 20030915
  Transmission Date: 20050211
  Serious: No
  Sender: FDA-Public Use
  Company Number: US-GLAXOSMITHKLINE-A0425938A

PATIENT
  Sex: Female

DRUGS (16)
  1. BECONASE [Suspect]
     Indication: ILL-DEFINED DISORDER
     Dosage: 1SPR PER DAY
     Route: 045
     Dates: start: 20030301
  2. ZANTAC [Concomitant]
  3. LASIX [Concomitant]
  4. FOLIC ACID [Concomitant]
  5. HYDROCODONE [Concomitant]
  6. GLIPIZIDE [Concomitant]
  7. DIOVAN [Concomitant]
  8. PREMARIN [Concomitant]
  9. MOTRIN [Concomitant]
  10. CENTRUM [Concomitant]
  11. VITAMIN E [Concomitant]
  12. VITAMIN A [Concomitant]
  13. GARLIC [Concomitant]
  14. CITRUCEL [Concomitant]
  15. DIAZEPAM [Concomitant]
  16. ATENOLOL [Concomitant]

REACTIONS (5)
  - DRUG INEFFECTIVE [None]
  - HEADACHE [None]
  - PAROSMIA [None]
  - PHARMACEUTICAL PRODUCT COMPLAINT [None]
  - RHINORRHOEA [None]
